FAERS Safety Report 24325498 (Version 1)
Quarter: 2024Q3

REPORT INFORMATION
  Report Type: Report from Study
  Country: US (occurrence: US)
  Receive Date: 20240917
  Receipt Date: 20240917
  Transmission Date: 20241016
  Serious: Yes (Hospitalization)
  Sender: ABBVIE
  Company Number: US-ABBVIE-5892125

PATIENT
  Age: 60 Year
  Sex: Female
  Weight: 72.121 kg

DRUGS (6)
  1. RINVOQ [Suspect]
     Active Substance: UPADACITINIB
     Indication: Psoriatic arthropathy
     Dosage: 15 MILLIGRAM
     Route: 048
     Dates: start: 20230427
  2. GABAPENTIN [Concomitant]
     Active Substance: GABAPENTIN
     Indication: Neuropathy peripheral
  3. DILTIAZEM [Concomitant]
     Active Substance: DILTIAZEM
     Indication: Palpitations
     Dosage: 240 MG
  4. XARELTO [Concomitant]
     Active Substance: RIVAROXABAN
     Indication: Thrombosis
     Dosage: 20 MG
  5. Vygard [Concomitant]
     Indication: Cardiac disorder
  6. METHOTREXATE [Suspect]
     Active Substance: METHOTREXATE
     Indication: Product used for unknown indication
     Route: 065

REACTIONS (4)
  - Spinal compression fracture [Recovered/Resolved]
  - Hepatitis [Unknown]
  - Hepatic enzyme increased [Recovered/Resolved]
  - Fall [Recovered/Resolved]

NARRATIVE: CASE EVENT DATE: 20240301
